FAERS Safety Report 10559521 (Version 1)
Quarter: 2014Q4

REPORT INFORMATION
  Report Type: Spontaneous
  Country: US (occurrence: None)
  Receive Date: 20141031
  Receipt Date: 20141031
  Transmission Date: 20150529
  Serious: No
  Sender: FDA-Public Use
  Company Number: None

PATIENT
  Age: 50 Year
  Sex: Female
  Weight: 70.5 kg

DRUGS (10)
  1. CLINDAMYCIN PHOSPHATE (CLEOCIN-T) [Concomitant]
  2. TRIAMCINOLONE ACETONIDE (KENALOG) [Concomitant]
  3. REVLIMID [Suspect]
     Active Substance: LENALIDOMIDE
     Indication: AMYLOIDOSIS
     Dosage: 10MG?X14D/28D?ORALLY
     Route: 048
     Dates: start: 201308
  4. REVLIMID [Suspect]
     Active Substance: LENALIDOMIDE
     Indication: PLASMA CELL MYELOMA
     Dosage: 10MG?X14D/28D?ORALLY
     Route: 048
     Dates: start: 201308
  5. ACYCLOVIR (ZOVIRAX) [Concomitant]
  6. LEVONORGESTREL-ETHINYL ESTRADIOL (LEVORA-28) [Concomitant]
  7. ATOVAQUONE (MEPRON) [Concomitant]
  8. FLUOCINONIDE (LIDEX /FLUEX) [Concomitant]
  9. PIMECROLIMUS (ELIDEL) [Concomitant]
  10. ATORVASTATIN (LIPITOR) [Concomitant]

REACTIONS (1)
  - Rash [None]

NARRATIVE: CASE EVENT DATE: 20141024
